FAERS Safety Report 4899669-7 (Version None)
Quarter: 2006Q1

REPORT INFORMATION
  Report Type: 
  Country: None (occurrence: None)
  Receive Date: 20060131
  Receipt Date: 20060119
  Transmission Date: 20060701
  Serious: Yes (Death, Hospitalization)
  Sender: FDA-Public Use
  Company Number: 06-NIP00003

PATIENT
  Age: 64 Year
  Sex: Female
  Weight: 58.3 kg

DRUGS (9)
  1. NIPENT [Suspect]
     Indication: CHRONIC LYMPHOCYTIC LEUKAEMIA
     Dosage: 0.1905 MG/M2 (4MG/M2, EVERY 21 DAYS); INTRAVENOUS
     Route: 042
     Dates: start: 20050822, end: 20060109
  2. RITUXIMAB (RITUXIMAB) (RITUXIMAB) [Suspect]
     Indication: CHRONIC LYMPHOCYTIC LEUKAEMIA
     Dosage: 17.8571 MG/M2 (375 MG/M2, EVERY 21 DAYS); INTRAVENOUS
     Route: 042
     Dates: start: 20050822, end: 20060109
  3. CYTOXAN [Suspect]
     Indication: CHRONIC LYMPHOCYTIC LEUKAEMIA
     Dosage: 28.5714 MG/M2 (600 MG/M2, EVERY 21 DAYS); INTRAVENOUS
     Route: 042
     Dates: start: 20050822, end: 20060109
  4. NEULASTA (PEGFILGRASTIM) (PEGFILGRASTIM) [Suspect]
     Dosage: 0.5714 MG (6 MG, 2 EVERY 21 DAYS); SUBCUTANEOUS
     Route: 058
     Dates: start: 20050822
  5. ACYCLOVIR [Concomitant]
  6. AZITHROMYCIN [Concomitant]
  7. BACTRIM DS (SULFAMETHOXAZOLE, TRIMETHOPRIM) (SULFAMETHOXAZOLE, TRIMETH [Concomitant]
  8. LASIX [Concomitant]
  9. PREDNISONE [Concomitant]

REACTIONS (9)
  - BODY TEMPERATURE INCREASED [None]
  - CARDIAC FAILURE CONGESTIVE [None]
  - GENERAL PHYSICAL HEALTH DETERIORATION [None]
  - HYPOTENSION [None]
  - MULTI-ORGAN FAILURE [None]
  - OEDEMA [None]
  - PNEUMONIA [None]
  - PNEUMONITIS [None]
  - RESPIRATORY DISTRESS [None]
